FAERS Safety Report 6507234-0 (Version None)
Quarter: 2009Q4

REPORT INFORMATION
  Report Type: 
  Country: None (occurrence: None)
  Receive Date: 20091221
  Receipt Date: 20091213
  Transmission Date: 20100525
  Serious: Yes (Hospitalization)
  Sender: FDA-Public Use
  Company Number: PHHO2007AR18621

PATIENT
  Sex: Female
  Weight: 92 kg

DRUGS (1)
  1. CERTICAN [Suspect]
     Indication: HEART TRANSPLANT
     Dosage: 3 MG/DAILY
     Route: 048
     Dates: start: 20071007

REACTIONS (6)
  - CARDIAC TAMPONADE [None]
  - CATHETER PLACEMENT [None]
  - CYTOMEGALOVIRUS INFECTION [None]
  - HEART TRANSPLANT REJECTION [None]
  - PERICARDIAL DRAINAGE [None]
  - PERICARDIAL EFFUSION [None]
